FAERS Safety Report 7476827-9 (Version None)
Quarter: 2011Q2

REPORT INFORMATION
  Report Type: 
  Country: None (occurrence: None)
  Receive Date: 20110512
  Receipt Date: 20110303
  Transmission Date: 20111010
  Serious: Yes (Other)
  Sender: FDA-Public Use
  Company Number: PHHY2011JP18641

PATIENT
  Age: 70 Year
  Sex: Female

DRUGS (3)
  1. CALCIUM ANTAGONIST [Concomitant]
     Dosage: UNK
  2. HYPOLIPIDEMIC AGENT [Concomitant]
     Dosage: UNK
  3. DIOVAN [Suspect]
     Dosage: 80 MG, QD
     Route: 048
     Dates: start: 20070101

REACTIONS (2)
  - BLOOD POTASSIUM INCREASED [None]
  - FRACTURE [None]
